FAERS Safety Report 14577528 (Version 1)
Quarter: 2018Q1

REPORT INFORMATION
  Report Type: Spontaneous
  Country: US (occurrence: US)
  Receive Date: 20180226
  Receipt Date: 20180226
  Transmission Date: 20180509
  Serious: No
  Sender: FDA-Public Use
  Company Number: None

PATIENT
  Age: 31 Year
  Sex: Female
  Weight: 61.65 kg

DRUGS (9)
  1. WOMEN^S MULTI [Concomitant]
  2. ARIPIPRAZOLE. [Suspect]
     Active Substance: ARIPIPRAZOLE
     Indication: MAJOR DEPRESSION
     Dosage: ?          QUANTITY:1 TABLET(S);?
     Route: 048
  3. DOCUSATE SODIUM. [Concomitant]
     Active Substance: DOCUSATE SODIUM
  4. VITAMIN D [Concomitant]
     Active Substance: CHOLECALCIFEROL
  5. DEXTROAMPHETAMINE XRELEASE [Concomitant]
  6. PROZAC/FLUOXETINE [Concomitant]
  7. WELLBUTRIN/BUPROPION [Concomitant]
  8. ABILIFY/ARIPIPRAZOLE [Concomitant]
  9. LEVOCETIRIZINE [Concomitant]
     Active Substance: LEVOCETIRIZINE

REACTIONS (8)
  - Apathy [None]
  - Headache [None]
  - Mania [None]
  - Product label issue [None]
  - Depression [None]
  - Insomnia [None]
  - Withdrawal syndrome [None]
  - Anxiety [None]

NARRATIVE: CASE EVENT DATE: 20171018
